FAERS Safety Report 8113049-2 (Version None)
Quarter: 2012Q1

REPORT INFORMATION
  Report Type: 
  Country: None (occurrence: None)
  Receive Date: 20120203
  Receipt Date: 20120125
  Transmission Date: 20120608
  Serious: Yes (Hospitalization)
  Sender: FDA-Public Use
  Company Number: US-GLAXOSMITHKLINE-A0926685A

PATIENT
  Age: 22 Year
  Sex: Male

DRUGS (3)
  1. ALCOHOL [Suspect]
     Indication: PRODUCT USED FOR UNKNOWN INDICATION
  2. WELLBUTRIN XL [Suspect]
     Indication: DEPRESSION
     Dosage: 300MG TWICE PER DAY
     Route: 048
     Dates: start: 20100129, end: 20100406
  3. SERTRALINE HYDROCHLORIDE [Concomitant]

REACTIONS (25)
  - HOSTILITY [None]
  - ALCOHOL POISONING [None]
  - FALL [None]
  - AGITATION [None]
  - DRUG INTERACTION [None]
  - GENERALISED ANXIETY DISORDER [None]
  - DYSARTHRIA [None]
  - FLUSHING [None]
  - DELIRIUM [None]
  - PHYSICAL ASSAULT [None]
  - AGGRESSION [None]
  - TREMOR [None]
  - CONFUSIONAL STATE [None]
  - DELUSION [None]
  - OCULAR HYPERAEMIA [None]
  - VERBAL ABUSE [None]
  - IMPRISONMENT [None]
  - PSYCHOTIC DISORDER [None]
  - IRRITABILITY [None]
  - ABNORMAL BEHAVIOUR [None]
  - LIP INJURY [None]
  - ANGER [None]
  - AMNESIA [None]
  - MAJOR DEPRESSION [None]
  - OVERDOSE [None]
